FAERS Safety Report 12443086 (Version 1)
Quarter: 2016Q2

REPORT INFORMATION
  Report Type: Spontaneous
  Country: US (occurrence: None)
  Receive Date: 20160606
  Receipt Date: 20160606
  Transmission Date: 20160815
  Serious: Yes (Disabling)
  Sender: FDA-Public Use
  Company Number: None

PATIENT
  Age: 33 Year
  Sex: Male
  Weight: 99.79 kg

DRUGS (5)
  1. CLARATIN [Concomitant]
  2. ADVIL [Concomitant]
     Active Substance: IBUPROFEN
  3. AFRIN [Suspect]
     Active Substance: OXYMETAZOLINE
     Indication: PULMONARY CONGESTION
     Route: 055
     Dates: start: 20160531, end: 20160602
  4. AFRIN [Suspect]
     Active Substance: OXYMETAZOLINE
     Indication: HYPERSENSITIVITY
     Route: 055
     Dates: start: 20160531, end: 20160602
  5. SUDAPHED [Concomitant]

REACTIONS (1)
  - Anosmia [None]

NARRATIVE: CASE EVENT DATE: 20160601
